FAERS Safety Report 12538043 (Version 3)
Quarter: 2016Q3

REPORT INFORMATION
  Report Type: Spontaneous
  Country: IL (occurrence: IL)
  Receive Date: 20160707
  Receipt Date: 20160831
  Transmission Date: 20161109
  Serious: Yes (Death, Hospitalization, Other)
  Sender: FDA-Public Use
  Company Number: IL-ABBVIE-16P-082-1668177-00

PATIENT
  Age: 69 Year
  Sex: Male
  Weight: 90 kg

DRUGS (4)
  1. VIEKIRAX [Suspect]
     Active Substance: OMBITASVIR\PARITAPREVIR\RITONAVIR
     Indication: CHILD-PUGH-TURCOTTE SCORE INCREASED
  2. EXVIERA [Suspect]
     Active Substance: DASABUVIR
     Indication: CHRONIC HEPATITIS C
     Route: 048
     Dates: start: 20160313, end: 20160605
  3. VIEKIRAX [Suspect]
     Active Substance: OMBITASVIR\PARITAPREVIR\RITONAVIR
     Indication: CHRONIC HEPATITIS C
     Route: 048
     Dates: start: 20160313, end: 20160605
  4. EXVIERA [Suspect]
     Active Substance: DASABUVIR
     Indication: CHILD-PUGH-TURCOTTE SCORE INCREASED

REACTIONS (8)
  - Pancreatic carcinoma metastatic [Fatal]
  - Encephalopathy [Unknown]
  - Feeling abnormal [Unknown]
  - Ascites [Unknown]
  - Hepatic failure [Unknown]
  - Thrombocytopenia [Unknown]
  - Hepatic lesion [Unknown]
  - Renal failure [Unknown]

NARRATIVE: CASE EVENT DATE: 20160620
